FAERS Safety Report 16749455 (Version 3)
Quarter: 2019Q3

REPORT INFORMATION
  Report Type: Spontaneous
  Country: ID (occurrence: ID)
  Receive Date: 20190828
  Receipt Date: 20190912
  Transmission Date: 20191005
  Serious: Yes (Death, Hospitalization)
  Sender: FDA-Public Use
  Company Number: ID-ROCHE-2366422

PATIENT
  Age: 57 Year
  Sex: Female

DRUGS (6)
  1. ALIMTA [Suspect]
     Active Substance: PEMETREXED DISODIUM
     Indication: PLEURAL EFFUSION
  2. ALIMTA [Suspect]
     Active Substance: PEMETREXED DISODIUM
     Indication: ASCITES
  3. TECENTRIQ [Suspect]
     Active Substance: ATEZOLIZUMAB
     Indication: OVARIAN CANCER STAGE IV
     Route: 065
     Dates: start: 20190729
  4. TECENTRIQ [Suspect]
     Active Substance: ATEZOLIZUMAB
     Indication: ASCITES
  5. ALIMTA [Suspect]
     Active Substance: PEMETREXED DISODIUM
     Indication: OVARIAN CANCER STAGE IV
     Route: 065
     Dates: start: 20190729
  6. TECENTRIQ [Suspect]
     Active Substance: ATEZOLIZUMAB
     Indication: PLEURAL EFFUSION

REACTIONS (5)
  - Performance status decreased [Fatal]
  - Intentional product use issue [Unknown]
  - Leukopenia [Unknown]
  - Diarrhoea [Unknown]
  - Off label use [Fatal]

NARRATIVE: CASE EVENT DATE: 20190815
